FAERS Safety Report 4738005-3 (Version None)
Quarter: 2005Q3

REPORT INFORMATION
  Report Type: 
  Country: None (occurrence: None)
  Receive Date: 20050805
  Receipt Date: 20050728
  Transmission Date: 20060218
  Serious: Yes (Death)
  Sender: FDA-Public Use
  Company Number: 200510329BYL

PATIENT
  Age: 77 Year
  Sex: Male
  Weight: 81.2 kg

DRUGS (10)
  1. ASPIRIN [Suspect]
     Indication: MYOCARDIAL INFARCTION
     Dosage: 100 MG, BID, ORAL
     Route: 048
     Dates: start: 20050507, end: 20050628
  2. ISOSORBIDE MONONITRATE [Suspect]
     Indication: MYOCARDIAL INFARCTION
     Dosage: 20 MG, BID, ORAL
     Route: 048
     Dates: start: 20050507, end: 20050620
  3. SIGMART (NICORANDIL) [Suspect]
     Indication: MYOCARDIAL INFARCTION
     Dosage: 10 MG, BID, ORAL
     Route: 048
     Dates: start: 20050507
  4. LIVALO (HMG COA REDUCTASE INHIBITORS) [Suspect]
     Indication: HYPERLIPIDAEMIA
     Dosage: SEE IMAGE
     Route: 048
     Dates: start: 20050225, end: 20050606
  5. LIVALO (HMG COA REDUCTASE INHIBITORS) [Suspect]
     Indication: HYPERLIPIDAEMIA
     Dosage: SEE IMAGE
     Route: 048
     Dates: start: 20050607, end: 20050614
  6. BLOPRESS [Concomitant]
  7. TANATRIL [Concomitant]
  8. NORVASC [Concomitant]
  9. AMARYL [Concomitant]
  10. GLUFAST [Concomitant]

REACTIONS (4)
  - JAUNDICE [None]
  - LIVER DISORDER [None]
  - PANCREATIC CARCINOMA [None]
  - PRURITUS [None]
